FAERS Safety Report 12631694 (Version 2)
Quarter: 2016Q3

REPORT INFORMATION
  Report Type: Spontaneous
  Country: US (occurrence: US)
  Receive Date: 20160808
  Receipt Date: 20160808
  Transmission Date: 20161109
  Serious: No
  Sender: FDA-Public Use
  Company Number: US-BEH-2015055353

PATIENT
  Sex: Female
  Weight: 99 kg

DRUGS (19)
  1. TRAZODONE [Concomitant]
     Active Substance: TRAZODONE HYDROCHLORIDE
  2. LISINOPRIL. [Concomitant]
     Active Substance: LISINOPRIL
  3. DIPHENHYDRAMINE. [Concomitant]
     Active Substance: DIPHENHYDRAMINE
  4. CIPRO [Concomitant]
     Active Substance: CIPROFLOXACIN HYDROCHLORIDE
  5. EPIPEN [Concomitant]
     Active Substance: EPINEPHRINE
  6. XANAX [Concomitant]
     Active Substance: ALPRAZOLAM
  7. MULTIVITAMIN [Concomitant]
     Active Substance: VITAMINS
  8. PREDNISONE. [Concomitant]
     Active Substance: PREDNISONE
  9. SIMVASTATIN. [Concomitant]
     Active Substance: SIMVASTATIN
  10. FLEXERIL [Concomitant]
     Active Substance: CYCLOBENZAPRINE HYDROCHLORIDE
  11. TYLENOL [Concomitant]
     Active Substance: ACETAMINOPHEN
  12. COUGH MEDICINE [Concomitant]
     Active Substance: UNSPECIFIED INGREDIENT
  13. CEPHALIN [Concomitant]
  14. RANITIDINE. [Concomitant]
     Active Substance: RANITIDINE
  15. LORTAB [Concomitant]
     Active Substance: ACETAMINOPHEN\HYDROCODONE BITARTRATE
  16. HIZENTRA [Suspect]
     Active Substance: HUMAN IMMUNOGLOBULIN G
     Indication: IMMUNODEFICIENCY COMMON VARIABLE
  17. HIZENTRA [Suspect]
     Active Substance: HUMAN IMMUNOGLOBULIN G
     Route: 058
  18. LIDOCAINE/PRILOCAINE [Concomitant]
     Active Substance: LIDOCAINE\PRILOCAINE
  19. TRIMADOL [Concomitant]

REACTIONS (2)
  - Sinusitis [Unknown]
  - Ear infection [Unknown]
